FAERS Safety Report 16897983 (Version 1)
Quarter: 2019Q4

REPORT INFORMATION
  Report Type: Spontaneous
  Country: CN (occurrence: CN)
  Receive Date: 20191009
  Receipt Date: 20191009
  Transmission Date: 20200122
  Serious: Yes (Other)
  Sender: FDA-Public Use
  Company Number: CN-PFIZER INC-2019430437

PATIENT
  Age: 80 Year
  Sex: Female
  Weight: 54 kg

DRUGS (8)
  1. LANSOPRAZOLE. [Concomitant]
     Active Substance: LANSOPRAZOLE
     Indication: MUSCLE SPASMS
     Dosage: 30 MG, 1X/DAY
     Route: 041
     Dates: start: 20190919, end: 20190923
  2. LOW MOLECULAR WEIGHT HEPARIN SODIUM [Suspect]
     Active Substance: HEPARIN SODIUM
     Indication: THROMBOSIS
     Dosage: 4250 IU, 1X/DAY
     Route: 058
     Dates: start: 20190920, end: 20190930
  3. SODIUM CHLORIDE. [Concomitant]
     Active Substance: SODIUM CHLORIDE
     Indication: VEHICLE SOLUTION USE
     Dosage: 200 ML, DAILY
     Route: 041
     Dates: start: 20190918, end: 20190923
  4. TRANEXAMIC ACID. [Concomitant]
     Active Substance: TRANEXAMIC ACID
     Indication: HAEMOSTASIS
     Dosage: 1 G, 1X/DAY
     Route: 041
     Dates: start: 20190918, end: 20190918
  5. CELECOXIB. [Suspect]
     Active Substance: CELECOXIB
     Indication: ANALGESIC THERAPY
     Dosage: 0.2 G, 2X/DAY
     Route: 048
     Dates: start: 20190923, end: 20190930
  6. KAI FEN [Concomitant]
     Active Substance: FLURBIPROFEN AXETIL
     Indication: ANALGESIC THERAPY
     Dosage: 50 MG, 1X/DAY
     Route: 041
     Dates: start: 20190919, end: 20190923
  7. CEFRADINE [Concomitant]
     Active Substance: CEPHRADINE
     Indication: INFECTION PROPHYLAXIS
     Dosage: 2 G, 1X/DAY
     Route: 041
     Dates: start: 20190918, end: 20190918
  8. LANSOPRAZOLE. [Concomitant]
     Active Substance: LANSOPRAZOLE
     Indication: THERAPEUTIC PROCEDURE

REACTIONS (8)
  - Femoral neck fracture [Unknown]
  - Blood alkaline phosphatase increased [Not Recovered/Not Resolved]
  - Condition aggravated [Unknown]
  - Alanine aminotransferase increased [Not Recovered/Not Resolved]
  - Osteoporosis [Unknown]
  - Hepatic enzyme increased [Not Recovered/Not Resolved]
  - Aspartate aminotransferase increased [Not Recovered/Not Resolved]
  - Gamma-glutamyltransferase increased [Not Recovered/Not Resolved]

NARRATIVE: CASE EVENT DATE: 201909
